FAERS Safety Report 6190910-X (Version None)
Quarter: 2009Q2

REPORT INFORMATION
  Report Type: 
  Country: None (occurrence: None)
  Receive Date: 20090514
  Receipt Date: 20090430
  Transmission Date: 20091009
  Serious: Yes (Hospitalization)
  Sender: FDA-Public Use
  Company Number: GB-GENENTECH-282812

PATIENT
  Age: 84 Year
  Sex: Female

DRUGS (8)
  1. ACTIVASE [Suspect]
     Indication: VENOUS THROMBOSIS
     Dosage: 15 MG, UNK
     Route: 042
     Dates: start: 20090416, end: 20090417
  2. HEPARIN [Suspect]
     Indication: VENOUS THROMBOSIS
     Dosage: 50 UNIT, UNK
     Route: 042
     Dates: start: 20090416, end: 20090417
  3. ATENOLOL [Concomitant]
     Indication: DRUG USE FOR UNKNOWN INDICATION
     Dosage: UNK
  4. BENDROFLUMETHIAZIDE [Concomitant]
     Indication: DRUG USE FOR UNKNOWN INDICATION
     Dosage: UNK
  5. BETAMETHASONE VALERATE [Concomitant]
     Indication: DRUG USE FOR UNKNOWN INDICATION
     Dosage: UNK
  6. ACETAMINOPHEN W/ CODEINE [Concomitant]
     Indication: DRUG USE FOR UNKNOWN INDICATION
     Dosage: UNK
  7. LOPERAMIDE HCL [Concomitant]
     Indication: DRUG USE FOR UNKNOWN INDICATION
     Dosage: UNK
  8. NITRAZEPAM [Concomitant]
     Indication: DRUG USE FOR UNKNOWN INDICATION
     Dosage: UNK

REACTIONS (3)
  - CONFUSIONAL STATE [None]
  - HAEMORRHAGE INTRACRANIAL [None]
  - HEADACHE [None]
